FAERS Safety Report 8272544-6 (Version None)
Quarter: 2012Q2

REPORT INFORMATION
  Report Type: 
  Country: None (occurrence: None)
  Receive Date: 20120410
  Receipt Date: 20120329
  Transmission Date: 20120825
  Serious: Yes (Other)
  Sender: FDA-Public Use
  Company Number: US-ROCHE-439412

PATIENT
  Sex: Female

DRUGS (2)
  1. BONIVA [Suspect]
     Route: 048
  2. BONIVA [Suspect]
     Indication: PRODUCT USED FOR UNKNOWN INDICATION
     Route: 048

REACTIONS (5)
  - ERUCTATION [None]
  - MASS [None]
  - CARDIAC OPERATION [None]
  - FLATULENCE [None]
  - BONE DISORDER [None]
